FAERS Safety Report 26215209 (Version 1)
Quarter: 2025Q4

REPORT INFORMATION
  Report Type: Report from Study
  Country: IL (occurrence: IL)
  Receive Date: 20251230
  Receipt Date: 20251230
  Transmission Date: 20260118
  Serious: Yes (Other)
  Sender: ABBVIE
  Company Number: IL-ABBVIE-6024468

PATIENT
  Age: 83 Year
  Sex: Male

DRUGS (4)
  1. CARBIDOPA\LEVODOPA [Suspect]
     Active Substance: CARBIDOPA\LEVODOPA
     Indication: Parkinson^s disease
     Dosage: ADDITIONAL TUBE FILING: 3 ML, MORNING DOSE 4.5ML, CONTINUOUS DOSE 4.7ML/HOUR, EXTRA DOSE 2ML, NCD...
     Route: 050
     Dates: start: 20250908, end: 20250908
  2. CARBIDOPA\LEVODOPA [Suspect]
     Active Substance: CARBIDOPA\LEVODOPA
     Dosage: DAY PUMP, MORNING DOSE 4.5 ML, CONTINUOUS DOSE 4.7ML/HOUR, EXTRA DOSE 2ML, ADDITIONAL TUBE FILING...
     Route: 050
     Dates: start: 20250320, end: 20250320
  3. CARBIDOPA\LEVODOPA [Suspect]
     Active Substance: CARBIDOPA\LEVODOPA
     Dosage: NIGHT CONTINUOUS DOSAGE-3.6ML/H, DURATION: GOING TO 24 HOURS
     Route: 050
     Dates: start: 20240925, end: 20240926
  4. CARBIDOPA\LEVODOPA [Suspect]
     Active Substance: CARBIDOPA\LEVODOPA
     Dosage: NIGHT CONTINUOUS DOSAGE-3.6ML/H
     Route: 050
     Dates: start: 20190404

REACTIONS (2)
  - Embedded device [Unknown]
  - Stoma site pain [Unknown]
